FAERS Safety Report 5092839-7 (Version None)
Quarter: 2006Q3

REPORT INFORMATION
  Report Type: 
  Country: None (occurrence: None)
  Receive Date: 20060727
  Receipt Date: 20060626
  Transmission Date: 20061208
  Serious: Yes (Other)
  Sender: FDA-Public Use
  Company Number: 2006071525

PATIENT
  Age: 74 Year
  Sex: Male
  Weight: 109.3169 kg

DRUGS (11)
  1. LYRICA [Suspect]
     Indication: DIABETIC NEUROPATHY
     Dosage: 100 MG (50 MG,2 IN 1 D),ORAL
     Route: 048
     Dates: start: 20060501
  2. ACTOS [Concomitant]
  3. PRANDIN [Concomitant]
  4. LASIX [Concomitant]
  5. CORGARD [Concomitant]
  6. POTASSIUM (POTASSIUM) [Concomitant]
  7. VYTORIN [Concomitant]
  8. AMITRIPTYLINE HCL [Concomitant]
  9. FLONASE [Concomitant]
  10. CALCIUM (CALCIUM) [Concomitant]
  11. NORVASC [Concomitant]

REACTIONS (1)
  - BLOOD GLUCOSE DECREASED [None]
